FAERS Safety Report 7965488-8 (Version None)
Quarter: 2011Q4

REPORT INFORMATION
  Report Type: 
  Country: None (occurrence: None)
  Receive Date: 20111206
  Receipt Date: 20111128
  Transmission Date: 20120403
  Serious: Yes (Hospitalization)
  Sender: FDA-Public Use
  Company Number: 1119614

PATIENT
  Age: 36 Year
  Sex: Female

DRUGS (5)
  1. DIAZEPAM [Suspect]
     Indication: CONVULSION
     Dosage: 10 MG MILLIGRAM(S),, INTRAVENOUS BOLUS
     Route: 040
     Dates: start: 20110116, end: 20110116
  2. PHENYTOIN [Suspect]
     Indication: CONVULSION
     Dosage: 1125 MG MILLIGRAM(S),, INTRAVENOUS (NOT OTHERWISE SPECIFIED)
     Route: 042
     Dates: start: 20110116, end: 20110116
  3. LEVETIRACETAM [Concomitant]
  4. PREGABALIN [Concomitant]
  5. FOLIC ACID [Concomitant]

REACTIONS (2)
  - CEREBRAL VENOUS THROMBOSIS [None]
  - THROMBOPHLEBITIS SUPERFICIAL [None]
